FAERS Safety Report 10085211 (Version 1)
Quarter: 2014Q2

REPORT INFORMATION
  Report Type: Spontaneous
  Country: DE (occurrence: DE)
  Receive Date: 20140417
  Receipt Date: 20140417
  Transmission Date: 20141212
  Serious: Yes (Death, Hospitalization)
  Sender: FDA-Public Use
  Company Number: PHHY2014DE043537

PATIENT
  Age: 42 Year
  Sex: Female

DRUGS (5)
  1. METHOTREXATE [Suspect]
     Indication: SJOGREN^S SYNDROME
     Dosage: 7.5-15 MG, QW
     Dates: start: 2009, end: 2012
  2. AZATHIOPRINE [Suspect]
     Indication: SJOGREN^S SYNDROME
     Dosage: 50-200 MG, PER DAY
     Dates: start: 2008, end: 2012
  3. CYCLOPHOSPHAMIDE [Suspect]
     Indication: SJOGREN^S SYNDROME
     Dosage: 13000 MG, CUMULATIVE (13 CYCLES WITH 1000 MG PER CYCLE )
     Dates: start: 2008, end: 2009
  4. RITUXIMAB [Suspect]
     Indication: SJOGREN^S SYNDROME
     Dosage: 2000 MG, EVERY 4 WEEKS
     Route: 042
     Dates: start: 2010, end: 2012
  5. IMMUNOGLOBULINS [Suspect]
     Indication: SJOGREN^S SYNDROME
     Dosage: 100 MG, EVERY WEEK
     Dates: start: 200909, end: 201112

REACTIONS (21)
  - Diffuse large B-cell lymphoma [Fatal]
  - Viral sepsis [Fatal]
  - Multi-organ failure [Fatal]
  - Epstein-Barr virus infection [Fatal]
  - Bone marrow tumour cell infiltration [Fatal]
  - Cardiac arrest [Fatal]
  - Lung infiltration [Fatal]
  - Renal failure acute [Unknown]
  - Gastrointestinal inflammation [Unknown]
  - Acute hepatic failure [Unknown]
  - Ascites [Unknown]
  - Coagulopathy [Unknown]
  - Acute lung injury [Unknown]
  - Hepatosplenomegaly [Unknown]
  - General physical health deterioration [Unknown]
  - Hyperkalaemia [Unknown]
  - Hypersensitivity vasculitis [Unknown]
  - Abdominal pain upper [Unknown]
  - Hepatic necrosis [Unknown]
  - Pancytopenia [Unknown]
  - Sjogren^s syndrome [Unknown]
